FAERS Safety Report 4634414-1 (Version None)
Quarter: 2005Q2

REPORT INFORMATION
  Report Type: 
  Country: None (occurrence: None)
  Receive Date: 20050412
  Receipt Date: 20050330
  Transmission Date: 20051028
  Serious: Yes (Death, Life-Threatening, Hospitalization)
  Sender: FDA-Public Use
  Company Number: 2004081893

PATIENT
  Age: 26 Year
  Sex: Male

DRUGS (4)
  1. GEODON [Suspect]
     Indication: AGITATION
     Dosage: 160 MG (80 MG, 2 IN 1 D)
     Route: 030
  2. ZYPREXA [Suspect]
     Indication: AGITATION
     Dates: start: 20010101
  3. ZYPREXA [Suspect]
     Indication: HALLUCINATION, AUDITORY
     Dates: start: 20010101
  4. ALL OTHER THERAPEUTIC PRODUCTS (ALL OTHER THERAPEUTIC PRODUCTS) [Concomitant]

REACTIONS (6)
  - AGGRESSION [None]
  - BODY TEMPERATURE INCREASED [None]
  - HEART RATE INCREASED [None]
  - INTENTIONAL SELF-INJURY [None]
  - NEUROLEPTIC MALIGNANT SYNDROME [None]
  - VENTRICULAR TACHYCARDIA [None]
